FAERS Safety Report 14187432 (Version 2)
Quarter: 2017Q4

REPORT INFORMATION
  Report Type: Spontaneous
  Country: FR (occurrence: FR)
  Receive Date: 20171114
  Receipt Date: 20171204
  Transmission Date: 20180321
  Serious: Yes (Other)
  Sender: FDA-Public Use
  Company Number: FR-BAYER-2017-215158

PATIENT
  Sex: Female

DRUGS (1)
  1. MIRENA [Suspect]
     Active Substance: LEVONORGESTREL
     Dosage: 20 MCG/24HR, CONT
     Route: 015

REACTIONS (2)
  - Colon cancer [None]
  - Amenorrhoea [None]
